FAERS Safety Report 6891419-8 (Version None)
Quarter: 2010Q3

REPORT INFORMATION
  Report Type: 
  Country: None (occurrence: None)
  Receive Date: 20100731
  Receipt Date: 20070719
  Transmission Date: 20110219
  Serious: No
  Sender: FDA-Public Use
  Company Number: US-PFIZER INC-2007060658

PATIENT
  Sex: Female
  Weight: 58.97 kg

DRUGS (2)
  1. NORVASC [Suspect]
     Indication: HYPERTENSION
     Dates: start: 20070601
  2. CLONIDINE [Concomitant]

REACTIONS (2)
  - HEADACHE [None]
  - SPEECH DISORDER [None]
